FAERS Safety Report 9201637 (Version 20)
Quarter: 2015Q4

REPORT INFORMATION
  Report Type: Report from Study
  Country: CA (occurrence: CA)
  Receive Date: 20130401
  Receipt Date: 20151102
  Transmission Date: 20160305
  Serious: Yes (Hospitalization, Other)
  Sender: FDA-Public Use
  Company Number: PHHY2013CA008031

PATIENT
  Age: 48 Year
  Sex: Female

DRUGS (6)
  1. GLEEVEC [Suspect]
     Active Substance: IMATINIB MESYLATE
     Dosage: 400 MG, QD
     Route: 048
     Dates: start: 201204, end: 201209
  2. STEMETIL [Suspect]
     Active Substance: PROCHLORPERAZINE MALEATE
     Indication: VOMITING
     Dosage: 10 MG, PRN
     Route: 048
  3. GLEEVEC [Suspect]
     Active Substance: IMATINIB MESYLATE
     Indication: GASTROINTESTINAL STROMAL TUMOUR
     Dosage: 800 MG, QD
     Route: 048
     Dates: start: 201204
  4. GLEEVEC [Suspect]
     Active Substance: IMATINIB MESYLATE
     Dosage: 400 MG, QD
     Route: 048
  5. STEMETIL [Suspect]
     Active Substance: PROCHLORPERAZINE MALEATE
     Indication: NAUSEA
     Dosage: 10 MG, QD
     Route: 048
  6. MOTILIUM [Concomitant]
     Active Substance: DOMPERIDONE
     Indication: PRODUCT USED FOR UNKNOWN INDICATION
     Route: 065

REACTIONS (52)
  - Acne [Recovering/Resolving]
  - Abnormal faeces [Unknown]
  - Nausea [Recovered/Resolved]
  - Abdominal discomfort [Unknown]
  - Depression [Unknown]
  - Fallopian tube cyst [Unknown]
  - Burnout syndrome [Recovered/Resolved]
  - Rectal haemorrhage [Unknown]
  - Diarrhoea [Not Recovered/Not Resolved]
  - Hypoaesthesia [Unknown]
  - Grip strength decreased [Unknown]
  - Hot flush [Unknown]
  - Gastrointestinal disorder [Unknown]
  - Asthenia [Unknown]
  - Dizziness [Unknown]
  - Peripheral swelling [Recovering/Resolving]
  - Fatigue [Unknown]
  - Insomnia [Unknown]
  - Dyspepsia [Unknown]
  - Dyspnoea [Unknown]
  - Sinusitis [Recovering/Resolving]
  - Vomiting [Recovered/Resolved]
  - Fluid intake reduced [Unknown]
  - Secretion discharge [Unknown]
  - Faeces hard [Unknown]
  - Hypersomnia [Unknown]
  - Phlebitis [Unknown]
  - Pain [Recovering/Resolving]
  - Blood test abnormal [Unknown]
  - Feeling abnormal [Unknown]
  - Bone pain [Unknown]
  - Pyrexia [Unknown]
  - Meningitis bacterial [Unknown]
  - Haemorrhagic cyst [Unknown]
  - Blood iron decreased [Unknown]
  - Cystitis [Recovered/Resolved]
  - Gastrooesophageal reflux disease [Unknown]
  - Anaemia [Recovered/Resolved]
  - Blood creatinine increased [Recovering/Resolving]
  - Carpal tunnel syndrome [Unknown]
  - Lacrimation increased [Recovering/Resolving]
  - Muscle spasms [Unknown]
  - Night sweats [Unknown]
  - Bowel movement irregularity [Unknown]
  - Flatulence [Unknown]
  - Intestinal obstruction [Unknown]
  - Abdominal pain [Not Recovered/Not Resolved]
  - Cyst rupture [Unknown]
  - Eye swelling [Recovering/Resolving]
  - Malaise [Recovered/Resolved]
  - Weight increased [Unknown]
  - Adhesion [Unknown]

NARRATIVE: CASE EVENT DATE: 20130322
